FAERS Safety Report 6230302-8 (Version None)
Quarter: 2009Q2

REPORT INFORMATION
  Report Type: 
  Country: None (occurrence: None)
  Receive Date: 20090615
  Receipt Date: 20090609
  Transmission Date: 20091009
  Serious: Yes (Hospitalization)
  Sender: FDA-Public Use
  Company Number: JP-MERCK-0906USA01623

PATIENT
  Age: 76 Year
  Sex: Female
  Weight: 50 kg

DRUGS (7)
  1. FOSAMAX [Suspect]
     Route: 048
     Dates: start: 20071201, end: 20090401
  2. OLMETEC [Concomitant]
     Route: 048
  3. DEPAS [Concomitant]
     Route: 048
  4. DOGMATYL [Concomitant]
     Route: 065
  5. GASMOTIN [Concomitant]
     Route: 048
  6. MAGMITT [Concomitant]
     Route: 048
  7. PURSENNID [Concomitant]
     Route: 048

REACTIONS (2)
  - CELLULITIS [None]
  - OSTEOMYELITIS [None]
